FAERS Safety Report 5441170-6 (Version None)
Quarter: 2007Q3

REPORT INFORMATION
  Report Type: 
  Country: None (occurrence: None)
  Receive Date: 20070901
  Receipt Date: 20070820
  Transmission Date: 20080115
  Serious: Yes (Hospitalization)
  Sender: FDA-Public Use
  Company Number: AU-PFIZER INC-2007069460

PATIENT
  Age: 75 Year
  Sex: Male

DRUGS (8)
  1. SUTENT [Suspect]
     Indication: RENAL CELL CARCINOMA STAGE UNSPECIFIED
     Route: 048
     Dates: start: 20070729, end: 20070814
  2. AMIODARONE [Concomitant]
  3. LASIX [Concomitant]
  4. METOPROLOL SUCCINATE [Concomitant]
  5. PREDNISOLONE [Concomitant]
  6. LIPITOR [Concomitant]
  7. PANADOL [Concomitant]
  8. ALL OTHER THERAPEUTIC PRODUCTS [Concomitant]

REACTIONS (6)
  - BODY TEMPERATURE INCREASED [None]
  - COUGH [None]
  - DELIRIUM [None]
  - ORAL PAIN [None]
  - ULCER [None]
  - WHEEZING [None]
